FAERS Safety Report 19374235 (Version 1)
Quarter: 2021Q2

REPORT INFORMATION
  Report Type: Spontaneous
  Country: US (occurrence: US)
  Receive Date: 20210604
  Receipt Date: 20210604
  Transmission Date: 20210717
  Serious: Yes (Other)
  Sender: FDA-Public Use
  Company Number: US-GLAXOSMITHKLINE-US2021GSK120932

PATIENT
  Sex: Male

DRUGS (7)
  1. RANITIDINE. [Suspect]
     Active Substance: RANITIDINE
     Indication: HYPERCHLORHYDRIA
     Dosage: 150 MG, QD
     Route: 065
     Dates: start: 199701, end: 201909
  2. RANITIDINE. [Suspect]
     Active Substance: RANITIDINE
     Dosage: UNK
  3. RANITIDINE. [Suspect]
     Active Substance: RANITIDINE
     Indication: HYPERCHLORHYDRIA
     Dosage: 150 MG, QD
     Route: 065
     Dates: start: 199701, end: 201909
  4. ZANTAC [Suspect]
     Active Substance: RANITIDINE HYDROCHLORIDE
     Indication: HYPERCHLORHYDRIA
     Dosage: 150 MG OVER THE COUNTER
     Route: 065
     Dates: start: 199701, end: 201909
  5. RANITIDINE. [Suspect]
     Active Substance: RANITIDINE
     Dosage: UNK
  6. ZANTAC [Suspect]
     Active Substance: RANITIDINE HYDROCHLORIDE
     Indication: HYPERCHLORHYDRIA
     Dosage: 300 UNK, QD
     Route: 065
     Dates: start: 199701, end: 201909
  7. ZANTAC [Suspect]
     Active Substance: RANITIDINE HYDROCHLORIDE
     Dosage: 300 UNK, QD
     Route: 065
     Dates: start: 199701, end: 201909

REACTIONS (1)
  - Renal cancer [Unknown]
